FAERS Safety Report 5574285-2 (Version None)
Quarter: 2007Q4

REPORT INFORMATION
  Report Type: 
  Country: None (occurrence: None)
  Receive Date: 20071226
  Receipt Date: 20071226
  Transmission Date: 20080405
  Serious: No
  Sender: FDA-Public Use
  Company Number: None

PATIENT
  Age: 52 Year
  Sex: Female
  Weight: 74.8435 kg

DRUGS (12)
  1. ARIMIDEX [Suspect]
     Indication: BREAST CANCER
     Dosage: 1MG DAILY
     Dates: start: 20050913, end: 20070910
  2. ARIMIDEX [Suspect]
     Indication: MASTECTOMY
     Dosage: 1MG DAILY
     Dates: start: 20050913, end: 20070910
  3. ARIMIDEX [Suspect]
     Indication: BREAST CANCER
     Dosage: 1MG DAILY
     Dates: start: 20071001, end: 20071025
  4. ARIMIDEX [Suspect]
     Indication: MASTECTOMY
     Dosage: 1MG DAILY
     Dates: start: 20071001, end: 20071025
  5. LIPITOR [Concomitant]
  6. CALCIUM/VITAMIN D [Concomitant]
  7. ZYPREXA [Concomitant]
  8. PRILOSEC [Concomitant]
  9. ADVAIR DISKUS 100/50 [Concomitant]
  10. LASIX [Concomitant]
  11. LACTULOSE [Concomitant]
  12. ATIVAN [Concomitant]

REACTIONS (1)
  - RASH [None]
